FAERS Safety Report 18341797 (Version 8)
Quarter: 2020Q4

REPORT INFORMATION
  Report Type: Report from Study
  Country: CN (occurrence: CN)
  Receive Date: 20201005
  Receipt Date: 20201216
  Transmission Date: 20210113
  Serious: Yes (Death, Hospitalization)
  Sender: FDA-Public Use
  Company Number: CN-ROCHE-2687023

PATIENT
  Age: 50 Year
  Sex: Male
  Weight: 70 kg

DRUGS (45)
  1. PEMETREXED. [Suspect]
     Active Substance: PEMETREXED
     Indication: NON-SMALL CELL LUNG CANCER
     Dosage: START DATE OF MOST RECENT DOSE OF STUDY DRUG PRIOR TO AE/SAE WAS 900 MG ON 08/SEP/2020
     Route: 042
     Dates: start: 20200702
  2. RHUBARB. [Concomitant]
     Active Substance: RHUBARB
     Dates: start: 20200908, end: 20200908
  3. PARACETAMOL [Concomitant]
     Active Substance: ACETAMINOPHEN
     Indication: PYREXIA
     Dates: start: 20200901, end: 20200902
  4. PREDNISONE ACETATE [Concomitant]
     Active Substance: PREDNISONE ACETATE
     Indication: ANTIINFLAMMATORY THERAPY
     Route: 048
     Dates: start: 20201004, end: 20201008
  5. BEVACIZUMAB. [Suspect]
     Active Substance: BEVACIZUMAB
     Dosage: DOSE LAST STUDY DRUG ADMIN PRIOR AE/SAE IS 1065 MG?DAY 1 OF EACH 21-DAY CYCLE?START DATE OF MOST REC
     Route: 042
     Dates: start: 20201030
  6. RECOMBINANT HUMAN GRANULOCYTE COLONY STIMULATING FACTOR [Concomitant]
     Active Substance: GRANULOCYTE COLONY-STIMULATING FACTOR NOS
     Dates: start: 20200910, end: 20200914
  7. FOLIC ACID. [Concomitant]
     Active Substance: FOLIC ACID
     Dates: start: 20200617, end: 20200617
  8. CALCIUM CARBONATE;VITAMIN D3 [Concomitant]
     Indication: MINERAL SUPPLEMENTATION
     Dates: start: 20200703, end: 20201117
  9. PANTOPRAZOLE SODIUM. [Concomitant]
     Active Substance: PANTOPRAZOLE SODIUM
     Dates: start: 20200908, end: 20200908
  10. PANTOPRAZOLE SODIUM. [Concomitant]
     Active Substance: PANTOPRAZOLE SODIUM
     Dates: start: 20200928, end: 20201006
  11. PREDNISONE ACETATE [Concomitant]
     Active Substance: PREDNISONE ACETATE
     Dosage: 5MG 4 TABLETS
     Route: 048
     Dates: start: 20201031, end: 20201102
  12. PREDNISONE ACETATE [Concomitant]
     Active Substance: PREDNISONE ACETATE
     Route: 048
     Dates: start: 20201103, end: 20201105
  13. LEVOFLOXACIN. [Concomitant]
     Active Substance: LEVOFLOXACIN
     Indication: ANTI-INFECTIVE THERAPY
     Dates: start: 20201010, end: 20201016
  14. AMBROXOL HYDROCHLORIDE [Concomitant]
     Active Substance: AMBROXOL HYDROCHLORIDE
     Dates: start: 20200928, end: 20201006
  15. CELEBREX [Concomitant]
     Active Substance: CELECOXIB
     Indication: PAIN
     Dates: start: 20201030, end: 20201117
  16. ONDANSETRON HYDROCHLORIDE. [Concomitant]
     Active Substance: ONDANSETRON HYDROCHLORIDE
     Indication: VOMITING
     Dates: start: 20200909, end: 20200915
  17. RECOMBINANT HUMAN ERYTHROPOIETIN INJECTION (CHO CELL) [Concomitant]
     Indication: ANAEMIA
     Dates: start: 20200909, end: 20200909
  18. RECOMBINANT HUMAN ERYTHROPOIETIN INJECTION (CHO CELL) [Concomitant]
     Dates: start: 20200924, end: 20201016
  19. PREDNISONE ACETATE [Concomitant]
     Active Substance: PREDNISONE ACETATE
     Dosage: 5MG 1 TAB
     Route: 048
     Dates: start: 20201109, end: 20201111
  20. OXYCONTIN [Concomitant]
     Active Substance: OXYCODONE HYDROCHLORIDE
     Indication: ANALGESIC THERAPY
     Dates: start: 20200630, end: 20201117
  21. SOLU-MEDROL [Concomitant]
     Active Substance: METHYLPREDNISOLONE SODIUM SUCCINATE
     Indication: ANTIINFLAMMATORY THERAPY
     Route: 042
     Dates: start: 20200928, end: 20200930
  22. CEFOPERAZONE SODIUM;SULBACTAM SODIUM [Concomitant]
     Active Substance: CEFOPERAZONE SODIUM\SULBACTAM SODIUM
     Route: 042
     Dates: start: 20200928, end: 20201006
  23. BEVACIZUMAB. [Suspect]
     Active Substance: BEVACIZUMAB
     Indication: NON-SMALL CELL LUNG CANCER
     Dosage: DOSE LAST STUDY DRUG ADMIN PRIOR AE/SAE IS 1065 MG?DAY 1 OF EACH 21-DAY CYCLE?START DATE OF MOST REC
     Route: 042
     Dates: start: 20200702
  24. GABAPENTIN. [Concomitant]
     Active Substance: GABAPENTIN
     Indication: ANALGESIC THERAPY
     Dates: start: 20200702, end: 20201117
  25. DEXAMETHASONE SODIUM PHOSPHATE. [Concomitant]
     Active Substance: DEXAMETHASONE SODIUM PHOSPHATE
     Route: 042
     Dates: start: 20200908, end: 20200908
  26. PREDNISONE ACETATE [Concomitant]
     Active Substance: PREDNISONE ACETATE
     Route: 048
     Dates: start: 20201009, end: 20201013
  27. ATROVENT [Concomitant]
     Active Substance: IPRATROPIUM BROMIDE
     Dates: start: 20200928, end: 20201010
  28. BICYCLOL [Concomitant]
     Active Substance: BICYCLOL
     Dates: start: 20201030, end: 20201111
  29. PLACEBO [Suspect]
     Active Substance: UNSPECIFIED INGREDIENT
     Indication: NON-SMALL CELL LUNG CANCER
     Dosage: DOSE LAST PLACEBO STUDY DRUG ADMIN PRIOR SAE WAS ON 08/SEP/2020 ?ON DAY 1 OF EACH 21-DAY CYCLE UNTIL
     Route: 042
     Dates: start: 20200702
  30. CARBOPLATIN. [Suspect]
     Active Substance: CARBOPLATIN
     Indication: NON-SMALL CELL LUNG CANCER
     Dosage: INITIAL TARGET AUC OF 6 MG/ML/MIN?MOST RECENT DOSE OF STUDY DRUG PRIOR TO AE AND SAE WAS 850 MG ON 0
     Route: 042
     Dates: start: 20200702
  31. ZOLEDRONIC ACID [Concomitant]
     Active Substance: ZOLEDRONIC ACID
     Dates: start: 20200909, end: 20200909
  32. PREDNISONE ACETATE [Concomitant]
     Active Substance: PREDNISONE ACETATE
     Route: 048
     Dates: start: 20201109, end: 20201111
  33. ACETYLCYSTEINE. [Concomitant]
     Active Substance: ACETYLCYSTEINE
     Dates: start: 20201010, end: 20201022
  34. DEXAMETHASONE SODIUM PHOSPHATE. [Concomitant]
     Active Substance: DEXAMETHASONE SODIUM PHOSPHATE
     Route: 042
     Dates: start: 20200909, end: 20200909
  35. PALONOSETRON HYDROCHLORIDE. [Concomitant]
     Active Substance: PALONOSETRON HYDROCHLORIDE
     Indication: VOMITING
     Dates: start: 20200908, end: 20200908
  36. IBUPROFEN. [Concomitant]
     Active Substance: IBUPROFEN
     Indication: PYREXIA
     Dates: start: 20200904, end: 20200904
  37. PREDNISONE ACETATE [Concomitant]
     Active Substance: PREDNISONE ACETATE
     Route: 048
     Dates: start: 20201106, end: 20201108
  38. PULMICORT RESPULES [Concomitant]
     Active Substance: BUDESONIDE
     Dates: start: 20200928, end: 20201010
  39. COMPOUND GLYCYRRHIZIN INJECTION [Concomitant]
     Indication: HEPATIC FUNCTION ABNORMAL
     Dates: start: 20201030, end: 20201030
  40. GLUTATHIONE REDUCED [Concomitant]
     Dates: start: 20201030, end: 20201030
  41. ZOLEDRONIC ACID [Concomitant]
     Active Substance: ZOLEDRONIC ACID
     Dates: start: 20201030, end: 20201030
  42. EMEND [Concomitant]
     Active Substance: APREPITANT
     Indication: NAUSEA
     Dates: start: 20200908, end: 20200910
  43. SOLU-MEDROL [Concomitant]
     Active Substance: METHYLPREDNISOLONE SODIUM SUCCINATE
     Route: 042
     Dates: start: 20201001, end: 20201003
  44. PREDNISONE ACETATE [Concomitant]
     Active Substance: PREDNISONE ACETATE
     Route: 048
     Dates: start: 20201014, end: 20201030
  45. NEXIUM [Concomitant]
     Active Substance: ESOMEPRAZOLE MAGNESIUM
     Dates: start: 20201007, end: 20201117

REACTIONS (3)
  - Interstitial lung disease [Fatal]
  - Hyperthyroidism [Not Recovered/Not Resolved]
  - Pneumonia [Not Recovered/Not Resolved]

NARRATIVE: CASE EVENT DATE: 20200927
